FAERS Safety Report 21120314 (Version 1)
Quarter: 2022Q3

REPORT INFORMATION
  Report Type: Spontaneous
  Country: US (occurrence: US)
  Receive Date: 20220722
  Receipt Date: 20220722
  Transmission Date: 20221027
  Serious: Yes (Other)
  Sender: FDA-Public Use
  Company Number: US-BAYER-2022A101386

PATIENT
  Sex: Male

DRUGS (2)
  1. ASPIRIN [Suspect]
     Active Substance: ASPIRIN
     Indication: Myelodysplastic syndrome
     Dosage: UNK
     Route: 048
  2. VENCLEXTA [Suspect]
     Active Substance: VENETOCLAX
     Indication: Myelodysplastic syndrome
     Dosage: UNK, FOR 3 WEEK (20-2)
     Route: 048
     Dates: start: 202110

REACTIONS (3)
  - Haemorrhage [Unknown]
  - Loss of consciousness [Unknown]
  - Product use in unapproved indication [None]
